FAERS Safety Report 22387990 (Version 2)
Quarter: 2023Q4

REPORT INFORMATION
  Report Type: Spontaneous
  Country: US (occurrence: US)
  Receive Date: 20230531
  Receipt Date: 20231230
  Transmission Date: 20240109
  Serious: Yes (Hospitalization, Other)
  Sender: FDA-Public Use
  Company Number: US-UCBSA-2023027448

PATIENT
  Age: 66 Year
  Sex: Female

DRUGS (1)
  1. KEPPRA [Suspect]
     Active Substance: LEVETIRACETAM
     Indication: Epilepsy
     Dosage: UNK
     Dates: start: 20220115, end: 202304

REACTIONS (7)
  - Hospitalisation [Recovered/Resolved]
  - Transient ischaemic attack [Recovered/Resolved]
  - Respiratory tract infection [Recovered/Resolved]
  - Dizziness [Recovered/Resolved]
  - Hot flush [Recovered/Resolved]
  - Tremor [Recovered/Resolved]
  - Nausea [Recovered/Resolved]

NARRATIVE: CASE EVENT DATE: 20220601
